FAERS Safety Report 5871359-3 (Version None)
Quarter: 2008Q3

REPORT INFORMATION
  Report Type: 
  Country: None (occurrence: None)
  Receive Date: 20080905
  Receipt Date: 20080828
  Transmission Date: 20090109
  Serious: Yes (Hospitalization, Other)
  Sender: FDA-Public Use
  Company Number: US-AMGEN-QUU304691

PATIENT
  Sex: Female

DRUGS (2)
  1. ENBREL [Suspect]
     Indication: RHEUMATOID ARTHRITIS
     Route: 058
     Dates: start: 20080801
  2. ARAVA [Concomitant]
     Dates: start: 20080710

REACTIONS (3)
  - BLOOD GLUCOSE ABNORMAL [None]
  - BRONCHITIS [None]
  - KIDNEY INFECTION [None]
